FAERS Safety Report 13905085 (Version 1)
Quarter: 2017Q3

REPORT INFORMATION
  Report Type: Report from Study
  Country: CA (occurrence: CA)
  Receive Date: 20170825
  Receipt Date: 20170825
  Transmission Date: 20171127
  Serious: Yes (Disabling)
  Sender: FDA-Public Use
  Company Number: CA-009507513-1610CAN013517

PATIENT
  Age: 56 Year
  Sex: Female

DRUGS (2)
  1. TEMODAL [Suspect]
     Active Substance: TEMOZOLOMIDE
     Indication: OLIGODENDROGLIOMA
     Dosage: 100 MG, DAILY
     Route: 048
     Dates: start: 201608
  2. KEPPRA [Suspect]
     Active Substance: LEVETIRACETAM
     Dosage: 750 MG, BID
     Dates: start: 201608

REACTIONS (4)
  - Fatigue [Unknown]
  - Off label use [Unknown]
  - Disturbance in attention [Unknown]
  - Memory impairment [Unknown]

NARRATIVE: CASE EVENT DATE: 201608
